FAERS Safety Report 10227400 (Version 1)
Quarter: 2014Q2

REPORT INFORMATION
  Report Type: Spontaneous
  Country: US (occurrence: US)
  Receive Date: 20140610
  Receipt Date: 20140610
  Transmission Date: 20141212
  Serious: Yes (Death, Hospitalization, Other)
  Sender: FDA-Public Use
  Company Number: US-AMGEN INC.-USASP2014042905

PATIENT
  Age: 75 Year
  Sex: Male

DRUGS (1)
  1. ENBREL [Suspect]
     Indication: RHEUMATOID ARTHRITIS
     Dosage: 50 MG, QWK
     Route: 065
     Dates: start: 20100316, end: 20140424

REACTIONS (5)
  - Dyspnoea [Fatal]
  - Lung disorder [Fatal]
  - Thoracic vertebral fracture [Unknown]
  - Myocardial infarction [Recovered/Resolved]
  - Platelet count abnormal [Recovered/Resolved]
